FAERS Safety Report 7570090-6 (Version None)
Quarter: 2011Q2

REPORT INFORMATION
  Report Type: 
  Country: None (occurrence: None)
  Receive Date: 20110624
  Receipt Date: 20110614
  Transmission Date: 20111010
  Serious: Yes (Hospitalization)
  Sender: FDA-Public Use
  Company Number: JP-JNJFOC-20100505788

PATIENT
  Sex: Male
  Weight: 29 kg

DRUGS (4)
  1. CONCERTA [Suspect]
     Route: 048
     Dates: start: 20090305
  2. NAUZELIN [Concomitant]
     Indication: PROPHYLAXIS
     Dosage: 1 DF
     Route: 048
     Dates: start: 20090430, end: 20090730
  3. CONCERTA [Suspect]
     Route: 048
     Dates: start: 20090430, end: 20090715
  4. CONCERTA [Suspect]
     Indication: ATTENTION DEFICIT/HYPERACTIVITY DISORDER
     Route: 048
     Dates: start: 20090730

REACTIONS (3)
  - FEBRILE CONVULSION [None]
  - ANAEMIA [None]
  - DEPRESSED LEVEL OF CONSCIOUSNESS [None]
